FAERS Safety Report 8987881 (Version 1)
Quarter: 2012Q4

REPORT INFORMATION
  Report Type: 
  Country: DE (occurrence: DE)
  Receive Date: 20121227
  Receipt Date: 20121227
  Transmission Date: 20130627
  Serious: Yes (Other)
  Sender: FDA-Public Use
  Company Number: DE-NICOBRDEVP-2012-22520

PATIENT
  Sex: Male
  Weight: 2 kg

DRUGS (1)
  1. METOPROLOL TARTRATE (UNKNOWN) [Suspect]
     Indication: MIGRAINE PROPHYLAXIS
     Dosage: 142.5 mg, daily
     Route: 064
     Dates: start: 20110909, end: 20120529

REACTIONS (3)
  - Hypoglycaemia neonatal [Recovered/Resolved]
  - Small for dates baby [Recovered/Resolved]
  - Neonatal respiratory distress syndrome [Recovered/Resolved]
